FAERS Safety Report 19827059 (Version 1)
Quarter: 2021Q3

REPORT INFORMATION
  Report Type: Spontaneous
  Country: US (occurrence: US)
  Receive Date: 20210914
  Receipt Date: 20210914
  Transmission Date: 20211014
  Serious: Yes (Life-Threatening, Hospitalization)
  Sender: FDA-Public Use
  Company Number: US-STRIDES ARCOLAB LIMITED-2020SP014400

PATIENT
  Age: 29 Month
  Sex: Female

DRUGS (2)
  1. AZATHIOPRINE. [Suspect]
     Active Substance: AZATHIOPRINE
     Indication: HEART TRANSPLANT
     Dosage: UNK
     Route: 065
  2. TACROLIMUS. [Suspect]
     Active Substance: TACROLIMUS
     Indication: HEART TRANSPLANT
     Dosage: UNK
     Route: 065

REACTIONS (10)
  - Fatigue [Unknown]
  - Gianotti-Crosti syndrome [Unknown]
  - Pyrexia [Unknown]
  - COVID-19 [Unknown]
  - Hepatocellular injury [Unknown]
  - Rash papular [Unknown]
  - Pallor [Unknown]
  - Anaemia [Unknown]
  - Hypophagia [Unknown]
  - Cough [Unknown]
